FAERS Safety Report 5220940-3 (Version None)
Quarter: 2007Q1

REPORT INFORMATION
  Report Type: 
  Country: None (occurrence: None)
  Receive Date: 20070126
  Receipt Date: 20070116
  Transmission Date: 20070707
  Serious: Yes (Other)
  Sender: FDA-Public Use
  Company Number: PHEH2007US00952

PATIENT
  Age: 82 Year
  Sex: Female

DRUGS (2)
  1. ENABLEX [Suspect]
     Indication: HYPERTONIC BLADDER
     Dosage: 7.5 MG, QD
     Dates: start: 20060101, end: 20061201
  2. ASPIRIN [Concomitant]

REACTIONS (2)
  - MACULAR DEGENERATION [None]
  - VISION BLURRED [None]
